FAERS Safety Report 25025286 (Version 1)
Quarter: 2025Q1

REPORT INFORMATION
  Report Type: Spontaneous
  Country: PT (occurrence: PT)
  Receive Date: 20250228
  Receipt Date: 20250228
  Transmission Date: 20250408
  Serious: Yes (Other)
  Sender: SANDOZ
  Company Number: PT-ORESUND-25OPAJY0095P

PATIENT
  Age: 59 Year
  Sex: Male

DRUGS (5)
  1. FINASTERIDE [Suspect]
     Active Substance: FINASTERIDE
     Indication: Product used for unknown indication
     Route: 065
  2. METHOTREXATE [Suspect]
     Active Substance: METHOTREXATE
     Indication: Product used for unknown indication
     Route: 065
  3. PREDNISOLONE [Suspect]
     Active Substance: PREDNISOLONE
     Indication: Product used for unknown indication
     Route: 048
  4. QUETIAPINE [Suspect]
     Active Substance: QUETIAPINE
     Indication: Product used for unknown indication
     Route: 065
  5. TAMSULOSIN [Suspect]
     Active Substance: TAMSULOSIN
     Indication: Chemotherapy
     Route: 065

REACTIONS (7)
  - Periphlebitis [Recovered/Resolved]
  - Vitritis [Recovered/Resolved]
  - B-cell lymphoma [Recovered/Resolved]
  - Uveitis [Recovered/Resolved]
  - Uveitis [Recovered/Resolved]
  - Mania [Recovered/Resolved]
  - Off label use [Unknown]
